FAERS Safety Report 8247805-7 (Version None)
Quarter: 2012Q1

REPORT INFORMATION
  Report Type: 
  Country: None (occurrence: None)
  Receive Date: 20120330
  Receipt Date: 20120321
  Transmission Date: 20120608
  Serious: Yes (Other)
  Sender: FDA-Public Use
  Company Number: US-JNJFOC-20120313866

PATIENT
  Sex: Female
  Weight: 54.43 kg

DRUGS (1)
  1. ORTHO CYCLEN-28 [Suspect]
     Indication: CONTRACEPTION
     Route: 048
     Dates: start: 20110101

REACTIONS (4)
  - MENSTRUATION IRREGULAR [None]
  - POST-TRAUMATIC NECK SYNDROME [None]
  - CONCUSSION [None]
  - HEAD INJURY [None]
